FAERS Safety Report 10602213 (Version 1)
Quarter: 2014Q4

REPORT INFORMATION
  Report Type: Spontaneous
  Country: GB (occurrence: GB)
  Receive Date: 20141124
  Receipt Date: 20141124
  Transmission Date: 20150529
  Serious: Yes (Hospitalization)
  Sender: FDA-Public Use
  Company Number: GB-WATSON-2014-25056

PATIENT
  Age: 55 Year
  Sex: Male
  Weight: 102 kg

DRUGS (4)
  1. ALLOPURINOL TEVA [Suspect]
     Active Substance: ALLOPURINOL
     Indication: GOUTY ARTHRITIS
     Dosage: 300 MG, DAILY
     Route: 048
     Dates: start: 20140923, end: 20141028
  2. ALLOPURINOL (UNKNOWN) [Suspect]
     Active Substance: ALLOPURINOL
     Indication: GOUTY ARTHRITIS
     Dosage: 300 MG, DAILY
     Route: 048
     Dates: start: 20140910, end: 20140923
  3. NAPROXEN. [Concomitant]
     Active Substance: NAPROXEN
     Indication: PRODUCT USED FOR UNKNOWN INDICATION
     Dosage: 500 MG, BID; 1-2 TABLETS TWICE A DAY
     Route: 048
     Dates: start: 20141014
  4. OMEPRAZOLE. [Concomitant]
     Active Substance: OMEPRAZOLE
     Indication: PRODUCT USED FOR UNKNOWN INDICATION
     Dosage: 10 MG, DAILY
     Route: 065
     Dates: start: 20141014

REACTIONS (7)
  - Product substitution issue [Unknown]
  - Eosinophil count increased [Recovering/Resolving]
  - Rash pruritic [Recovering/Resolving]
  - Dermatitis exfoliative [Recovering/Resolving]
  - Neutrophil count increased [Recovering/Resolving]
  - Basophil count increased [Recovering/Resolving]
  - C-reactive protein increased [Recovering/Resolving]

NARRATIVE: CASE EVENT DATE: 20141026
